FAERS Safety Report 8490361-9 (Version None)
Quarter: 2012Q3

REPORT INFORMATION
  Report Type: 
  Country: None (occurrence: None)
  Receive Date: 20120705
  Receipt Date: 20120622
  Transmission Date: 20120928
  Serious: Yes (Hospitalization)
  Sender: FDA-Public Use
  Company Number: FR-SANOFI-AVENTIS-2012SA044854

PATIENT
  Age: 75 Year
  Sex: Female

DRUGS (13)
  1. EPIRUBICIN HYDROCHLORIDE [Suspect]
     Dosage: 4 CYCLES.
     Route: 042
     Dates: start: 20041203, end: 20050202
  2. ESTRACYT [Concomitant]
     Route: 048
     Dates: start: 20091203, end: 20110101
  3. ANASTROZOLE [Concomitant]
     Route: 048
     Dates: start: 20080101, end: 20090201
  4. XELODA [Concomitant]
     Dosage: 4 CYCLES.
     Route: 048
     Dates: start: 20070801, end: 20071101
  5. FEMARA [Concomitant]
     Route: 048
     Dates: start: 20050401, end: 20061101
  6. NAVOBAN [Concomitant]
     Dosage: 4 CYCLES.
     Route: 048
     Dates: start: 20070701, end: 20071101
  7. TAXOTERE [Suspect]
     Dosage: 3 CYCLES.
     Route: 042
     Dates: start: 20050308, end: 20050419
  8. DOXORUBICIN HCL [Suspect]
     Dosage: 17 CYCLES.
     Route: 042
     Dates: start: 20071127, end: 20091105
  9. FLUOROURACIL [Suspect]
     Dosage: 4 CYCLES.
     Route: 042
     Dates: start: 20041203, end: 20050202
  10. CYCLOPHOSPHAMIDE [Suspect]
     Dosage: 4 CYCLES.
     Route: 042
     Dates: start: 20041203, end: 20050202
  11. NAVELBINE [Concomitant]
     Dosage: 90 MG J1 - J8
     Route: 042
     Dates: start: 20070701, end: 20071101
  12. AROMASIN [Concomitant]
     Route: 048
     Dates: start: 20061101, end: 20070201
  13. FASLODEX [Concomitant]
     Route: 030
     Dates: start: 20070201, end: 20070501

REACTIONS (1)
  - TONGUE NEOPLASM MALIGNANT STAGE UNSPECIFIED [None]
